FAERS Safety Report 16575543 (Version 2)
Quarter: 2019Q3

REPORT INFORMATION
  Report Type: Spontaneous
  Country: CN (occurrence: CN)
  Receive Date: 20190716
  Receipt Date: 20190718
  Transmission Date: 20191004
  Serious: Yes (Other)
  Sender: FDA-Public Use
  Company Number: CN-JNJFOC-20190709507

PATIENT
  Age: 14 Day
  Sex: Female
  Weight: 1.3 kg

DRUGS (1)
  1. MOTRIN INFANTS [Suspect]
     Active Substance: IBUPROFEN
     Indication: PATENT DUCTUS ARTERIOSUS
     Dosage: 0.6 ML ON 16-JUN-2019 AND WAS CONTINUED GIVING 0.3 ML ON 17-JUN-2019
     Route: 048
     Dates: start: 20190616, end: 20190617

REACTIONS (3)
  - Lower gastrointestinal haemorrhage [Recovering/Resolving]
  - Product use in unapproved indication [Recovering/Resolving]
  - Off label use [Unknown]

NARRATIVE: CASE EVENT DATE: 20190616
